FAERS Safety Report 7128941-5 (Version None)
Quarter: 2010Q4

REPORT INFORMATION
  Report Type: 
  Country: None (occurrence: None)
  Receive Date: 20101130
  Receipt Date: 20101125
  Transmission Date: 20110411
  Serious: Yes (Other)
  Sender: FDA-Public Use
  Company Number: B0686176A

PATIENT
  Sex: Male

DRUGS (4)
  1. LAMICTAL [Suspect]
     Route: 048
  2. TEGRETOL [Suspect]
     Route: 048
  3. RIVOTRIL [Suspect]
     Route: 048
  4. ALEVIATIN [Suspect]
     Route: 065

REACTIONS (1)
  - INTERSTITIAL LUNG DISEASE [None]
